FAERS Safety Report 20806882 (Version 1)
Quarter: 2022Q2

REPORT INFORMATION
  Report Type: Spontaneous
  Country: MX (occurrence: MX)
  Receive Date: 20220510
  Receipt Date: 20220510
  Transmission Date: 20220720
  Serious: Yes (Other)
  Sender: FDA-Public Use
  Company Number: MX-BAYER-2022P001960

PATIENT
  Age: 93 Year
  Sex: Female
  Weight: 60.2 kg

DRUGS (1)
  1. XARELTO [Suspect]
     Active Substance: RIVAROXABAN
     Indication: Product used for unknown indication
     Dosage: 15 MG, QD
     Route: 048
     Dates: start: 20210225

REACTIONS (6)
  - Gastric ulcer [Unknown]
  - Rectal haemorrhage [Unknown]
  - Diabetes mellitus [Unknown]
  - Faeces discoloured [Unknown]
  - Epistaxis [Unknown]
  - Blood glucose increased [Unknown]
